FAERS Safety Report 9135206 (Version 1)
Quarter: 2013Q1

REPORT INFORMATION
  Report Type: Spontaneous
  Country: None (occurrence: US)
  Receive Date: 20130304
  Receipt Date: 20130304
  Transmission Date: 20140127
  Serious: No
  Sender: FDA-Public Use
  Company Number: US-ALLERGAN-1205496US

PATIENT
  Age: 18 Year
  Sex: Male

DRUGS (3)
  1. TAZORAC [Suspect]
     Indication: ACNE
     Dosage: UNK
     Route: 061
     Dates: start: 2010, end: 201112
  2. TAZORAC [Suspect]
     Indication: ACNE
     Dosage: UNK
     Route: 061
     Dates: start: 2010, end: 201112
  3. BENZOQUINE [Concomitant]
     Indication: ACNE
     Dosage: UNK

REACTIONS (4)
  - Capillary fragility [Not Recovered/Not Resolved]
  - Flushing [Not Recovered/Not Resolved]
  - Erythema [Recovering/Resolving]
  - Skin exfoliation [Unknown]
